FAERS Safety Report 5971885-2 (Version None)
Quarter: 2008Q4

REPORT INFORMATION
  Report Type: 
  Country: None (occurrence: None)
  Receive Date: 20081124
  Receipt Date: 20081117
  Transmission Date: 20090506
  Serious: Yes (Hospitalization)
  Sender: FDA-Public Use
  Company Number: 2008AL011822

PATIENT
  Age: 9 Year
  Sex: Female

DRUGS (3)
  1. PHENYTOIN [Suspect]
     Indication: CONVULSION
  2. CYCLOSPORINE [Concomitant]
  3. TACROLIMUS [Concomitant]

REACTIONS (15)
  - ACUTE GRAFT VERSUS HOST DISEASE IN SKIN [None]
  - APOPTOSIS [None]
  - BONE MARROW FAILURE [None]
  - BONE MARROW TRANSPLANT [None]
  - CARDIOVASCULAR DISORDER [None]
  - CHOLESTASIS [None]
  - CONVULSION [None]
  - DERMATITIS [None]
  - DRUG RASH WITH EOSINOPHILIA AND SYSTEMIC SYMPTOMS [None]
  - DRUG TOXICITY [None]
  - GENERAL PHYSICAL HEALTH DETERIORATION [None]
  - HEPATITIS [None]
  - PANCYTOPENIA [None]
  - PRURITUS [None]
  - TRANSPLANT FAILURE [None]
